FAERS Safety Report 4522001-5 (Version None)
Quarter: 2004Q4

REPORT INFORMATION
  Report Type: 
  Country: None (occurrence: None)
  Receive Date: 20041206
  Receipt Date: 20041118
  Transmission Date: 20050328
  Serious: Yes (Hospitalization)
  Sender: FDA-Public Use
  Company Number: 196155

PATIENT
  Age: 52 Year
  Sex: Female
  Weight: 75.7507 kg

DRUGS (10)
  1. AVONEX [Suspect]
     Indication: MULTIPLE SCLEROSIS
     Dosage: SEE IMAGE
     Route: 030
     Dates: start: 20010101, end: 20030101
  2. AVONEX [Suspect]
     Indication: MULTIPLE SCLEROSIS
     Dosage: SEE IMAGE
     Route: 030
     Dates: start: 20040414, end: 20041001
  3. PROZAC [Concomitant]
  4. LEXAPRO [Concomitant]
  5. MORPHINE [Concomitant]
  6. METHADONE [Concomitant]
  7. ROBINAL [Concomitant]
  8. ASACOL [Concomitant]
  9. KLONOPIN [Concomitant]
  10. VALIUM [Concomitant]

REACTIONS (17)
  - ABDOMINAL PAIN [None]
  - ANXIETY [None]
  - BLOOD ELECTROLYTES ABNORMAL [None]
  - BLOOD POTASSIUM DECREASED [None]
  - CALCINOSIS [None]
  - CONDITION AGGRAVATED [None]
  - CROHN'S DISEASE [None]
  - DIARRHOEA [None]
  - GALLBLADDER DISORDER [None]
  - MEMORY IMPAIRMENT [None]
  - MULTIPLE SCLEROSIS [None]
  - OVARIAN MASS [None]
  - PULMONARY FIBROSIS [None]
  - PYREXIA [None]
  - RED BLOOD CELL SEDIMENTATION RATE INCREASED [None]
  - UPPER RESPIRATORY TRACT INFECTION [None]
  - WHITE BLOOD CELL COUNT DECREASED [None]
